FAERS Safety Report 8036275-X (Version None)
Quarter: 2011Q4

REPORT INFORMATION
  Report Type: 
  Country: None (occurrence: None)
  Receive Date: 20111202
  Receipt Date: 20111101
  Transmission Date: 20120403
  Serious: No
  Sender: FDA-Public Use
  Company Number: PHEH2011US06194

PATIENT
  Age: 39 Year
  Sex: Female

DRUGS (3)
  1. FANAPT [Suspect]
     Indication: BIPOLAR DISORDER
     Dosage: 6  MG, BID, ORAL, 60MG QD ORAL
     Route: 048
     Dates: start: 20110328, end: 20110502
  2. FANAPT [Suspect]
     Indication: BIPOLAR DISORDER
     Dosage: 6  MG, BID, ORAL, 60MG QD ORAL
     Route: 048
     Dates: start: 20110502, end: 20110501
  3. COGENTIN [Concomitant]

REACTIONS (1)
  - OEDEMA PERIPHERAL [None]
